FAERS Safety Report 20844205 (Version 2)
Quarter: 2022Q2

REPORT INFORMATION
  Report Type: Report from Study
  Country: PR (occurrence: PR)
  Receive Date: 20220518
  Receipt Date: 20220524
  Transmission Date: 20220721
  Serious: Yes (Hospitalization)
  Sender: FDA-Public Use
  Company Number: PR-ABBVIE-22K-131-4399141-00

PATIENT
  Sex: Female
  Weight: 46.308 kg

DRUGS (1)
  1. VENCLEXTA [Suspect]
     Active Substance: VENETOCLAX
     Indication: Acute myeloid leukaemia
     Route: 048
     Dates: start: 20211116

REACTIONS (4)
  - Diverticulitis [Not Recovered/Not Resolved]
  - White blood cell count decreased [Unknown]
  - Decreased appetite [Unknown]
  - Fatigue [Unknown]
